FAERS Safety Report 9270886 (Version 1)
Quarter: 2013Q2

REPORT INFORMATION
  Report Type: Spontaneous
  Country: FR (occurrence: FR)
  Receive Date: 20130503
  Receipt Date: 20130503
  Transmission Date: 20140414
  Serious: Yes (Other)
  Sender: FDA-Public Use
  Company Number: FR-ASTRAZENECA-2013SE30373

PATIENT
  Age: 77 Year
  Sex: Female

DRUGS (7)
  1. CRESTOR [Suspect]
     Indication: DYSLIPIDAEMIA
     Route: 048
     Dates: start: 201201, end: 20120811
  2. FEMARA [Interacting]
     Indication: BREAST CANCER
     Route: 065
     Dates: start: 2007, end: 201302
  3. INSULATARD [Concomitant]
     Indication: TYPE 1 DIABETES MELLITUS
  4. PLAVIX [Concomitant]
  5. OMEPRAZOLE [Concomitant]
  6. ACTONEL [Concomitant]
  7. PRAXILENE [Concomitant]

REACTIONS (2)
  - Potentiating drug interaction [Unknown]
  - Drug-induced liver injury [Not Recovered/Not Resolved]
